FAERS Safety Report 7747792-1 (Version None)
Quarter: 2011Q3

REPORT INFORMATION
  Report Type: 
  Country: None (occurrence: None)
  Receive Date: 20110913
  Receipt Date: 20110902
  Transmission Date: 20111222
  Serious: Yes (Hospitalization, Other)
  Sender: FDA-Public Use
  Company Number: NO-ROCHE-800880

PATIENT
  Sex: Male
  Weight: 78 kg

DRUGS (5)
  1. INTERFERON ALFA [Suspect]
     Route: 058
     Dates: start: 20080504, end: 20081014
  2. INTERFERON ALFA [Suspect]
     Route: 058
     Dates: start: 20050228, end: 20060807
  3. WARFARIN SODIUM [Suspect]
     Indication: ANTICOAGULANT THERAPY
     Route: 065
     Dates: start: 20080411
  4. INTERFERON ALFA [Suspect]
     Route: 058
     Dates: start: 20081015
  5. IRBESARTAN AND HYDROCHLOROTHIAZIDE [Concomitant]
     Indication: HYPERTENSION

REACTIONS (2)
  - DRUG INTOLERANCE [None]
  - HAEMORRHAGE [None]
